FAERS Safety Report 10092381 (Version 1)
Quarter: 2014Q2

REPORT INFORMATION
  Report Type: Spontaneous
  Country: US (occurrence: US)
  Receive Date: 20140421
  Receipt Date: 20140421
  Transmission Date: 20141212
  Serious: No
  Sender: FDA-Public Use
  Company Number: US-SANOFI-AVENTIS-2013SA040173

PATIENT
  Age: 79 Year
  Sex: Female

DRUGS (2)
  1. ALLEGRA ALLERGY, 12 HR [Suspect]
     Indication: NASOPHARYNGITIS
     Dosage: DOSE AND FREQUENCY: TWICE DAILY ON ONE DAY AND OTHER DAYS SHE TOOK ONE TABLET
     Route: 048
     Dates: start: 20130412, end: 20130415
  2. ALLEGRA ALLERGY, 12 HR [Suspect]
     Indication: RESPIRATORY TRACT CONGESTION
     Dosage: DOSE AND FREQUENCY: TWICE DAILY ON ONE DAY AND OTHER DAYS SHE TOOK ONE TABLET
     Route: 048
     Dates: start: 20130412, end: 20130415

REACTIONS (1)
  - Muscle spasms [Not Recovered/Not Resolved]
